FAERS Safety Report 13629725 (Version 1)
Quarter: 2017Q2

REPORT INFORMATION
  Report Type: Spontaneous
  Country: US (occurrence: US)
  Receive Date: 20170531
  Receipt Date: 20170531
  Transmission Date: 20170830
  Serious: No
  Sender: FDA-Public Use
  Company Number: US-ASTELLAS-1238654

PATIENT
  Sex: Female

DRUGS (1)
  1. TARCEVA [Suspect]
     Active Substance: ERLOTINIB HYDROCHLORIDE
     Indication: PRODUCT USED FOR UNKNOWN INDICATION
     Route: 048
     Dates: start: 20130130

REACTIONS (6)
  - Anaemia [Unknown]
  - Hepatic enzyme abnormal [Unknown]
  - Hypotension [Unknown]
  - Fluid retention [Unknown]
  - Fatigue [Unknown]
  - Rash [Unknown]
